FAERS Safety Report 8206102-6 (Version None)
Quarter: 2012Q1

REPORT INFORMATION
  Report Type: 
  Country: None (occurrence: None)
  Receive Date: 20120313
  Receipt Date: 20120228
  Transmission Date: 20120608
  Serious: Yes (Other)
  Sender: FDA-Public Use
  Company Number: PHHY2012GB016974

PATIENT
  Age: 83 Year
  Sex: Male
  Weight: 68.2 kg

DRUGS (11)
  1. STALEVO 100 [Concomitant]
  2. MIRTAZAPINE [Suspect]
     Indication: DEPRESSION
     Dosage: 15 MG, UNK
     Route: 048
     Dates: start: 20111229, end: 20120114
  3. ACETAMINOPHEN [Concomitant]
  4. MACROGOL 3350 [Concomitant]
  5. SLOW-K [Concomitant]
  6. ENTACAPONE [Concomitant]
  7. FLUDROCORTISONE ACETATE [Concomitant]
  8. QUETIAPINE [Concomitant]
  9. SINEMET CR [Concomitant]
  10. FINASTERIDE [Concomitant]
  11. LANSOPRAZOLE [Concomitant]

REACTIONS (2)
  - SEPSIS [None]
  - NEUTROPENIA [None]
